FAERS Safety Report 8256249 (Version 2)
Quarter: 2014Q2

REPORT INFORMATION
  Report Type: Spontaneous
  Country: US (occurrence: US)
  Receive Date: 20111121
  Receipt Date: 20140509
  Transmission Date: 20141212
  Serious: Yes (Congenital Anomaly, Other)
  Sender: FDA-Public Use
  Company Number: US-PFIZER INC-2011281026

PATIENT
  Sex: Male

DRUGS (5)
  1. ZOLOFT [Suspect]
     Dosage: UNK
     Route: 064
     Dates: start: 200709, end: 200711
  2. ZOLOFT [Suspect]
     Dosage: UNK
     Route: 064
     Dates: end: 200901
  3. PRENATAL VITAMINS [Concomitant]
     Dosage: UNK
     Route: 064
  4. IRON [Concomitant]
     Dosage: UNK, PILLS
     Route: 064
  5. TYLENOL [Concomitant]
     Dosage: UNK
     Route: 064

REACTIONS (4)
  - Maternal exposure timing unspecified [Unknown]
  - Limb malformation [Unknown]
  - Talipes [Unknown]
  - Premature baby [Unknown]
